FAERS Safety Report 15640817 (Version 1)
Quarter: 2018Q4

REPORT INFORMATION
  Report Type: Other
  Country: IN (occurrence: IN)
  Receive Date: 20181120
  Receipt Date: 20181120
  Transmission Date: 20190205
  Serious: Yes (Hospitalization)
  Sender: FDA-Public Use
  Company Number: IN-LEADING PHARMA, LLC-2059107

PATIENT
  Age: 57 Year
  Sex: Male

DRUGS (1)
  1. FOLIC ACID. [Suspect]
     Active Substance: FOLIC ACID

REACTIONS (2)
  - Toxicity to various agents [Recovered/Resolved]
  - Medication error [Recovered/Resolved]
